FAERS Safety Report 21444919 (Version 2)
Quarter: 2022Q4

REPORT INFORMATION
  Report Type: Report from Study
  Country: FR (occurrence: FR)
  Receive Date: 20221012
  Receipt Date: 20221017
  Transmission Date: 20230113
  Serious: Yes (Hospitalization)
  Sender: FDA-Public Use
  Company Number: FR-ASTELLAS-2022US035277

PATIENT
  Age: 63 Year
  Sex: Female
  Weight: 50 kg

DRUGS (8)
  1. TACROLIMUS [Suspect]
     Active Substance: TACROLIMUS
     Indication: Prophylaxis against transplant rejection
     Route: 048
     Dates: start: 20180425, end: 20190424
  2. EVEROLIMUS [Concomitant]
     Active Substance: EVEROLIMUS
     Indication: Immunosuppression
     Dosage: 4 (UNKNOWN UNITS), TOTAL DAILY DOSE
     Route: 065
     Dates: start: 20150214, end: 20190423
  3. EVEROLIMUS [Concomitant]
     Active Substance: EVEROLIMUS
     Dosage: 1.5 (UNKNOWN UNITS), TOTAL DAILY DOSE
     Route: 065
     Dates: start: 20190424, end: 20190520
  4. EVEROLIMUS [Concomitant]
     Active Substance: EVEROLIMUS
     Dosage: 2 (UNKNOWN UNITS), TOTAL DAILY DOSE
     Route: 065
     Dates: start: 20190521, end: 20200526
  5. EVEROLIMUS [Concomitant]
     Active Substance: EVEROLIMUS
     Dosage: 2.25 (UNKNOWN UNITS), TOTAL DAILY DOSE
     Route: 065
     Dates: start: 20200527, end: 20200926
  6. EVEROLIMUS [Concomitant]
     Active Substance: EVEROLIMUS
     Dosage: 2.5 (UNKNOWN UNITS), TOTAL DAILY DOSE
     Route: 065
     Dates: start: 20200927
  7. PREDNISONE [Concomitant]
     Active Substance: PREDNISONE
     Indication: Immunosuppression
     Dosage: 5 (UNKNOWN UNITS), TOTAL DAILY DOSE
     Route: 065
     Dates: start: 20150219, end: 20161013
  8. PREDNISONE [Concomitant]
     Active Substance: PREDNISONE
     Dosage: 5 (UNKNOWN UNITS), TOTAL DAILY DOSE
     Route: 065
     Dates: start: 20161124

REACTIONS (2)
  - Meningoradiculitis [Recovered/Resolved with Sequelae]
  - Human herpesvirus 6 infection [Recovered/Resolved with Sequelae]

NARRATIVE: CASE EVENT DATE: 20190401
